FAERS Safety Report 25036617 (Version 1)
Quarter: 2025Q1

REPORT INFORMATION
  Report Type: Spontaneous
  Country: US (occurrence: None)
  Receive Date: 20250304
  Receipt Date: 20250304
  Transmission Date: 20250409
  Serious: Yes (Hospitalization, Other)
  Sender: INCYTE
  Company Number: US-INCYTE CORPORATION-2025IN002209

PATIENT

DRUGS (1)
  1. JAKAFI [Suspect]
     Active Substance: RUXOLITINIB
     Indication: Peripheral T-cell lymphoma unspecified
     Dosage: 10 MILLIGRAM, BID

REACTIONS (8)
  - Pyrexia [Unknown]
  - Abdominal pain [Unknown]
  - Pneumonitis [Unknown]
  - Pneumonia [Unknown]
  - Lymphadenopathy [Unknown]
  - Haemangioma [Unknown]
  - Pain [Unknown]
  - Off label use [Unknown]
